FAERS Safety Report 16768031 (Version 1)
Quarter: 2019Q3

REPORT INFORMATION
  Report Type: Spontaneous
  Country: GB (occurrence: GB)
  Receive Date: 20190903
  Receipt Date: 20190903
  Transmission Date: 20191005
  Serious: Yes (Hospitalization)
  Sender: FDA-Public Use
  Company Number: GB-009507513-1908GBR010249

PATIENT
  Age: 74 Year
  Sex: Male

DRUGS (7)
  1. FEXOFENADINE HYDROCHLORIDE. [Concomitant]
     Active Substance: FEXOFENADINE HYDROCHLORIDE
     Dosage: IN THE MORNING
     Route: 048
  2. MINERAL OIL. [Concomitant]
     Active Substance: MINERAL OIL
     Dosage: APPLY
     Route: 061
  3. PETROLATUM, WHITE [Concomitant]
     Active Substance: PETROLATUM
     Dosage: APPLY
     Route: 061
  4. MENTHOL. [Concomitant]
     Active Substance: MENTHOL
     Dosage: APPLY
     Route: 061
  5. TEMOZOLOMIDE. [Suspect]
     Active Substance: TEMOZOLOMIDE
     Dosage: 500 MILLIGRAM, QD
     Route: 048
  6. FELODIPINE. [Concomitant]
     Active Substance: FELODIPINE
     Dosage: IN THE MORNING
     Route: 048
  7. AQUEOUS CREAM [Concomitant]
     Dosage: APPLY
     Route: 061

REACTIONS (2)
  - Pyrexia [Unknown]
  - Rash vesicular [Recovered/Resolved with Sequelae]

NARRATIVE: CASE EVENT DATE: 20190610
